FAERS Safety Report 23668567 (Version 1)
Quarter: 2024Q1

REPORT INFORMATION
  Report Type: Spontaneous
  Country: CN (occurrence: CN)
  Receive Date: 20240325
  Receipt Date: 20240325
  Transmission Date: 20240410
  Serious: Yes (Life-Threatening, Hospitalization, Disabling, Other)
  Sender: FDA-Public Use
  Company Number: CN-SA-SAC20240322001358

PATIENT
  Age: 58 Year
  Sex: Female
  Weight: 55 kg

DRUGS (4)
  1. ZOLPIDEM TARTRATE [Suspect]
     Active Substance: ZOLPIDEM TARTRATE
     Indication: Insomnia
     Dosage: 10 MG, QD
     Route: 048
     Dates: start: 20180504, end: 20240317
  2. ESTAZOLAM [Suspect]
     Active Substance: ESTAZOLAM
     Indication: Insomnia
     Dosage: 2 MG, QD
     Route: 048
     Dates: start: 20180504, end: 20240317
  3. ASPIRIN [Suspect]
     Active Substance: ASPIRIN
     Indication: Arteriosclerosis
     Dosage: 100 MG, QD
     Route: 048
     Dates: start: 20230201, end: 20240317
  4. OXYGEN [Concomitant]
     Active Substance: OXYGEN
     Indication: Adjuvant therapy
     Dosage: UNK
     Dates: start: 202403

REACTIONS (16)
  - Haemolytic uraemic syndrome [Unknown]
  - Haematuria [Unknown]
  - Back pain [Unknown]
  - Dysphoria [Unknown]
  - Pancreatitis acute [Unknown]
  - Platelet count decreased [Unknown]
  - Hypoproteinaemia [Unknown]
  - Cholecystitis chronic [Unknown]
  - Muscle twitching [Unknown]
  - Trismus [Unknown]
  - Acute myocardial infarction [Unknown]
  - Headache [Unknown]
  - Nausea [Unknown]
  - Vomiting [Unknown]
  - Hepatic function abnormal [Unknown]
  - Intentional product misuse [Unknown]

NARRATIVE: CASE EVENT DATE: 20240317
